FAERS Safety Report 20424462 (Version 1)
Quarter: 2022Q1

REPORT INFORMATION
  Report Type: Spontaneous
  Country: FR (occurrence: FR)
  Receive Date: 20220203
  Receipt Date: 20220203
  Transmission Date: 20220423
  Serious: Yes (Hospitalization)
  Sender: FDA-Public Use
  Company Number: None

PATIENT
  Age: 61 Year
  Sex: Male
  Weight: 66 kg

DRUGS (8)
  1. CABOMETYX [Suspect]
     Active Substance: CABOZANTINIB S-MALATE
     Indication: Clear cell renal cell carcinoma
     Dosage: 1 {DF}, (DOSAGE FORM) QD
     Route: 048
     Dates: start: 202101, end: 202108
  2. CABOMETYX [Suspect]
     Active Substance: CABOZANTINIB S-MALATE
     Dosage: 1 {DF}, (DOSAGE FORM) QD
     Route: 048
  3. LOVENOX [Concomitant]
     Active Substance: ENOXAPARIN SODIUM
     Indication: Thrombosis prophylaxis
     Route: 058
  4. ACETAMINOPHEN [Concomitant]
     Active Substance: ACETAMINOPHEN
     Indication: Pain
     Route: 048
  5. FENTANYL [Concomitant]
     Active Substance: FENTANYL
     Indication: Pain
     Route: 062
     Dates: start: 20210901
  6. XGEVA [Concomitant]
     Active Substance: DENOSUMAB
     Indication: Clear cell renal cell carcinoma
     Route: 058
  7. LEVOTHYROXINE [Concomitant]
     Active Substance: LEVOTHYROXINE
     Indication: Hypothyroidism
     Route: 048
  8. Cacit [Concomitant]
     Indication: Mineral supplementation
     Route: 048

REACTIONS (2)
  - Hyponatraemia [Recovered/Resolved]
  - Diarrhoea [Recovered/Resolved]

NARRATIVE: CASE EVENT DATE: 20210816
